FAERS Safety Report 21837570 (Version 2)
Quarter: 2023Q1

REPORT INFORMATION
  Report Type: Report from Study
  Country: CN (occurrence: CN)
  Receive Date: 20230109
  Receipt Date: 20230111
  Transmission Date: 20230417
  Serious: Yes (Other)
  Sender: FDA-Public Use
  Company Number: CN-ROCHE-2750563

PATIENT
  Age: 55 Year
  Sex: Female

DRUGS (1)
  1. ERLOTINIB [Suspect]
     Active Substance: ERLOTINIB
     Indication: Non-small cell lung cancer
     Route: 048
     Dates: start: 20140714

REACTIONS (8)
  - Syncope [Unknown]
  - Immunodeficiency [Unknown]
  - COVID-19 [Unknown]
  - Muscular weakness [Unknown]
  - Asthenia [Unknown]
  - Movement disorder [Unknown]
  - Loss of personal independence in daily activities [Unknown]
  - Malaise [Unknown]
